FAERS Safety Report 9523109 (Version 1)
Quarter: 2013Q3

REPORT INFORMATION
  Report Type: Other
  Country: DE (occurrence: DE)
  Receive Date: 20130913
  Receipt Date: 20130913
  Transmission Date: 20140515
  Serious: Yes (Other)
  Sender: FDA-Public Use
  Company Number: DE-BRISTOL-MYERS SQUIBB COMPANY-19251073

PATIENT
  Age: 28 Year
  Sex: Male

DRUGS (4)
  1. PACLITAXEL [Suspect]
     Indication: NEUROENDOCRINE TUMOUR
  2. IFOSFAMIDE [Suspect]
     Indication: NEUROENDOCRINE TUMOUR
  3. ETOPOSIDE [Suspect]
     Indication: NEUROENDOCRINE TUMOUR
  4. CARBOPLATIN [Suspect]
     Indication: NEUROENDOCRINE TUMOUR

REACTIONS (2)
  - Convulsion [Unknown]
  - Mucosal inflammation [Unknown]
